FAERS Safety Report 8570130 (Version 4)
Quarter: 2012Q4

REPORT INFORMATION
  Report Type: 
  Country: GB (occurrence: GB)
  Receive Date: 20120521
  Receipt Date: 20120913
  Transmission Date: 20130627
  Serious: Yes (Hospitalization, Other)
  Sender: FDA-Public Use
  Company Number: GB-AMGEN-GBRSP2012030662

PATIENT
  Age: 50 Year
  Sex: Female
  Weight: 68 kg

DRUGS (7)
  1. NEULASTA [Suspect]
     Indication: NEUTROPENIA
     Dosage: 6 mg, UNK
     Route: 058
     Dates: start: 20120501, end: 20120501
  2. 5-FLUOROURACIL /00098801/ [Concomitant]
     Indication: BREAST CANCER
     Dosage: 850 mg, UNK
     Route: 042
  3. EPIRUBICIN [Concomitant]
     Indication: BREAST CANCER
     Dosage: 170 mg, UNK
     Route: 042
  4. CYCLOPHOSPHAMIDE [Concomitant]
     Indication: BREAST CANCER
     Dosage: 850 mg, UNK
     Route: 042
  5. ZOFRAN                             /00955301/ [Concomitant]
     Dosage: 8 mg, bid
  6. DEXAMETHASONE [Concomitant]
     Dosage: 8 mg, bid
  7. METOCLOPRAMIDE [Concomitant]
     Dosage: 10 mg, tid

REACTIONS (10)
  - Neutropenic sepsis [Recovered/Resolved]
  - Body temperature increased [Recovered/Resolved]
  - Neutropenia [Recovered/Resolved]
  - Drug ineffective [Unknown]
  - Anaphylactic reaction [Unknown]
  - Oedema mucosal [Unknown]
  - Swelling face [Unknown]
  - Swollen tongue [Unknown]
  - Erythema [Unknown]
  - Dyspnoea [Unknown]
